FAERS Safety Report 20507152 (Version 1)
Quarter: 2022Q1

REPORT INFORMATION
  Report Type: Spontaneous
  Country: US (occurrence: US)
  Receive Date: 20220223
  Receipt Date: 20220223
  Transmission Date: 20220423
  Serious: No
  Sender: FDA-Public Use
  Company Number: US-PFIZER INC-202101653238

PATIENT
  Age: 47 Year
  Sex: Female

DRUGS (1)
  1. XELJANZ [Suspect]
     Active Substance: TOFACITINIB CITRATE
     Indication: Rheumatoid arthritis
     Dosage: 5 MG, 2X/DAY
     Route: 048
     Dates: start: 202110

REACTIONS (7)
  - Product dose omission issue [Unknown]
  - Memory impairment [Unknown]
  - Cough [Unknown]
  - Oropharyngeal pain [Unknown]
  - Pain [Unknown]
  - Discouragement [Unknown]
  - Depressed mood [Unknown]
